FAERS Safety Report 11146038 (Version 1)
Quarter: 2015Q2

REPORT INFORMATION
  Report Type: Spontaneous
  Country: US (occurrence: None)
  Receive Date: 20150527
  Receipt Date: 20150527
  Transmission Date: 20150821
  Serious: Yes (Life-Threatening, Disabling)
  Sender: FDA-Public Use
  Company Number: None

PATIENT
  Sex: Female
  Weight: 95.26 kg

DRUGS (14)
  1. MELOXICAM. [Suspect]
     Active Substance: MELOXICAM
  2. DILTIAZEM [Suspect]
     Active Substance: DILTIAZEM
  3. POTASSIUM [Concomitant]
     Active Substance: POTASSIUM
  4. TRAMADOL [Concomitant]
     Active Substance: TRAMADOL
  5. CLONAZEPAM. [Concomitant]
     Active Substance: CLONAZEPAM
  6. AMLODIPINE [Suspect]
     Active Substance: AMLODIPINE BESYLATE
     Indication: BLOOD PRESSURE
     Dosage: BY MOUTH
     Dates: start: 201401, end: 201502
  7. FUROSEMIDE. [Concomitant]
     Active Substance: FUROSEMIDE
  8. ASPIRIN. [Concomitant]
     Active Substance: ASPIRIN
  9. LISINOPRIL 40 MG LUPIN PHARMACE [Suspect]
     Active Substance: LISINOPRIL
  10. VERAPAMIL [Suspect]
     Active Substance: VERAPAMIL HYDROCHLORIDE
  11. LABETALOL [Suspect]
     Active Substance: LABETALOL\LABETALOL HYDROCHLORIDE
     Dosage: 3 PILLS
  12. LOSARTAN [Concomitant]
     Active Substance: LOSARTAN
  13. 1 A DAY VITAMIN [Concomitant]
     Active Substance: VITAMINS
  14. VENTOLIN [Concomitant]
     Active Substance: ALBUTEROL SULFATE

REACTIONS (4)
  - Therapy change [None]
  - Abasia [None]
  - Blood potassium decreased [None]
  - Peripheral swelling [None]

NARRATIVE: CASE EVENT DATE: 2014
